FAERS Safety Report 12465856 (Version 2)
Quarter: 2018Q2

REPORT INFORMATION
  Report Type: Spontaneous
  Country: US (occurrence: US)
  Receive Date: 20160614
  Receipt Date: 20180517
  Transmission Date: 20180711
  Serious: Yes (Life-Threatening, Hospitalization, Disabling, Other)
  Sender: FDA-Public Use
  Company Number: US-009507513-1606USA004364

PATIENT
  Sex: Female
  Weight: 113.38 kg

DRUGS (3)
  1. NUVARING [Suspect]
     Active Substance: ETHINYL ESTRADIOL\ETONOGESTREL
     Indication: CONTRACEPTION
     Dosage: UNK
     Route: 067
     Dates: start: 20130319, end: 20150915
  2. DECADRON [Suspect]
     Active Substance: DEXAMETHASONE
     Indication: HAEMORRHAGE INTRACRANIAL
     Dosage: 2 MG, QD
     Route: 065
     Dates: start: 20150914, end: 20151104
  3. DECADRON [Suspect]
     Active Substance: DEXAMETHASONE
     Indication: TRANSVERSE SINUS THROMBOSIS
     Dosage: 1 MG, QD
     Route: 065
     Dates: start: 20151104, end: 20151202

REACTIONS (36)
  - Infusion site bruising [Unknown]
  - Nausea [Unknown]
  - Fluid retention [Unknown]
  - Generalised oedema [Unknown]
  - Paraesthesia [Unknown]
  - Feeling hot [Unknown]
  - Dysmenorrhoea [Unknown]
  - Haemorrhage intracranial [Recovered/Resolved with Sequelae]
  - Ear pain [Unknown]
  - Labile hypertension [Recovering/Resolving]
  - Cystitis escherichia [Unknown]
  - Anxiety [Not Recovered/Not Resolved]
  - Asthenia [Unknown]
  - Dyspnoea [Unknown]
  - Hyperhidrosis [Unknown]
  - Appetite disorder [Unknown]
  - Iron deficiency [Unknown]
  - Patellofemoral pain syndrome [Unknown]
  - Infusion site extravasation [Unknown]
  - Night sweats [Unknown]
  - Adrenal insufficiency [Unknown]
  - Crying [Unknown]
  - Weight increased [Not Recovered/Not Resolved]
  - Irritability [Unknown]
  - Fungal infection [Unknown]
  - Reactive airways dysfunction syndrome [Unknown]
  - Transverse sinus thrombosis [Recovered/Resolved with Sequelae]
  - Malaise [Unknown]
  - Headache [Recovering/Resolving]
  - Blood pressure decreased [Not Recovered/Not Resolved]
  - Epistaxis [Unknown]
  - Adjustment disorder with depressed mood [Recovering/Resolving]
  - Back pain [Not Recovered/Not Resolved]
  - Mood altered [Unknown]
  - Sinus disorder [Unknown]
  - Fatigue [Unknown]

NARRATIVE: CASE EVENT DATE: 201509
